FAERS Safety Report 5935661-9 (Version None)
Quarter: 2008Q4

REPORT INFORMATION
  Report Type: 
  Country: None (occurrence: None)
  Receive Date: 20081030
  Receipt Date: 20081023
  Transmission Date: 20090506
  Serious: Yes (Other)
  Sender: FDA-Public Use
  Company Number: JP-WYE-H06528008

PATIENT
  Age: 79 Year
  Sex: Female

DRUGS (1)
  1. TAZOCIN [Suspect]
     Dosage: 2.5 G - DOSING INTERVAL NOT PROVIDED
     Route: 041
     Dates: start: 20070601, end: 20070601

REACTIONS (2)
  - LIVER DISORDER [None]
  - TOXIC EPIDERMAL NECROLYSIS [None]
